FAERS Safety Report 5214247-8 (Version None)
Quarter: 2007Q1

REPORT INFORMATION
  Report Type: 
  Country: None (occurrence: None)
  Receive Date: 20070122
  Receipt Date: 20070119
  Transmission Date: 20070707
  Serious: Yes (Life-Threatening, Hospitalization)
  Sender: FDA-Public Use
  Company Number: 2007GB00037

PATIENT
  Sex: Female

DRUGS (1)
  1. MARCAINE [Suspect]
     Indication: CAESAREAN SECTION
     Route: 037
     Dates: start: 20070108, end: 20070108

REACTIONS (2)
  - CARDIAC ARREST [None]
  - THERAPEUTIC RESPONSE INCREASED [None]
